FAERS Safety Report 6622159-8 (Version None)
Quarter: 2010Q1

REPORT INFORMATION
  Report Type: 
  Country: None (occurrence: None)
  Receive Date: 20100303
  Receipt Date: 20100121
  Transmission Date: 20100710
  Serious: Yes (Life-Threatening, Hospitalization)
  Sender: FDA-Public Use
  Company Number: ABWAW-10-0027

PATIENT
  Age: 65 Year
  Sex: Male
  Weight: 79.8 kg

DRUGS (1)
  1. ABRAXANE     (PACILITAXEL) [Suspect]
     Indication: DRUG USE FOR UNKNOWN INDICATION
     Dosage: (533 MG)
     Dates: start: 20100111, end: 20100121

REACTIONS (2)
  - ACUTE PULMONARY OEDEMA [None]
  - TACHYPNOEA [None]
